FAERS Safety Report 25776499 (Version 1)
Quarter: 2025Q3

REPORT INFORMATION
  Report Type: Spontaneous
  Country: US (occurrence: US)
  Receive Date: 20250909
  Receipt Date: 20250909
  Transmission Date: 20251021
  Serious: No
  Sender: DOMPE FARMACEUTICI
  Company Number: US-FARMAPROD-202409-3121

PATIENT
  Age: 90 Year
  Sex: Male
  Weight: 74.84 kg

DRUGS (16)
  1. OXERVATE [Suspect]
     Active Substance: CENEGERMIN-BKBJ
     Indication: Neurotrophic keratopathy
     Route: 047
     Dates: start: 20240828
  2. PSYLLIUM FIBER [Concomitant]
     Active Substance: PSYLLIUM HUSK
  3. XYLITOL [Concomitant]
     Active Substance: XYLITOL
  4. SYSTANE ULTRA PF [Concomitant]
  5. SYSTANE GEL [Concomitant]
  6. PATADAY ONCE DAILY RELIEF [Concomitant]
     Active Substance: OLOPATADINE HYDROCHLORIDE
  7. ZYRTEC [Concomitant]
     Active Substance: CETIRIZINE HYDROCHLORIDE
  8. TRAZODONE HCL [Concomitant]
     Active Substance: TRAZODONE HYDROCHLORIDE
  9. PANTOPRAZOLE SODIUM [Concomitant]
     Active Substance: PANTOPRAZOLE SODIUM
  10. ELIQUIS [Concomitant]
     Active Substance: APIXABAN
  11. DAILY PROBIOTIC [Concomitant]
  12. VITAMINS [Concomitant]
     Active Substance: VITAMINS
  13. ROSUVASTATIN CALCIUM [Concomitant]
     Active Substance: ROSUVASTATIN CALCIUM
  14. ALBUTEROL SULFATE [Concomitant]
     Active Substance: ALBUTEROL SULFATE
  15. TRELEGY ELLIPTA [Concomitant]
     Active Substance: FLUTICASONE FUROATE\UMECLIDINIUM BROMIDE\VILANTEROL TRIFENATATE
  16. SOTALOL [Concomitant]
     Active Substance: SOTALOL

REACTIONS (2)
  - Swelling of eyelid [Unknown]
  - Eye pain [Unknown]

NARRATIVE: CASE EVENT DATE: 20240829
